FAERS Safety Report 10029682 (Version 1)
Quarter: 2014Q1

REPORT INFORMATION
  Report Type: Spontaneous
  Country: US (occurrence: None)
  Receive Date: 20140321
  Receipt Date: 20140321
  Transmission Date: 20141002
  Serious: Yes (Other)
  Sender: FDA-Public Use
  Company Number: None

PATIENT
  Age: 54 Year
  Sex: Female
  Weight: 71.67 kg

DRUGS (1)
  1. ZOLOFT [Suspect]
     Indication: PANIC ATTACK
     Route: 048
     Dates: start: 20121101, end: 20140319

REACTIONS (2)
  - Visual field defect [None]
  - Visual impairment [None]
